FAERS Safety Report 10067562 (Version 2)
Quarter: 2014Q2

REPORT INFORMATION
  Report Type: Spontaneous
  Country: FR (occurrence: FR)
  Receive Date: 20140409
  Receipt Date: 20140416
  Transmission Date: 20141212
  Serious: Yes (Hospitalization)
  Sender: FDA-Public Use
  Company Number: FR-JNJFOC-20140318254

PATIENT
  Age: 57 Year
  Sex: Female

DRUGS (17)
  1. RISPERDALORO [Suspect]
     Indication: MENTAL DISORDER
     Route: 048
     Dates: start: 20131003, end: 20140213
  2. ZINNAT [Suspect]
     Indication: LUNG INFECTION
     Route: 048
     Dates: start: 20140210, end: 20140212
  3. METOJECT [Suspect]
     Indication: RHEUMATOID ARTHRITIS
     Route: 030
     Dates: end: 201310
  4. METOJECT [Suspect]
     Indication: RHEUMATOID ARTHRITIS
     Route: 030
     Dates: start: 20131215, end: 20140213
  5. SERTRALINE [Suspect]
     Indication: MENTAL DISORDER
     Dosage: SERTALINE STARTED IN AUG, DISCONTINUED IN OCT
     Route: 048
     Dates: start: 20131107, end: 20140213
  6. OLANZAPINE [Suspect]
     Indication: PRODUCT USED FOR UNKNOWN INDICATION
     Route: 048
     Dates: start: 20131107, end: 20140213
  7. ACTONEL [Suspect]
     Indication: OSTEOPOROSIS
     Dosage: LONG STANDING THERAPY TO 13 FEB 2014
     Route: 048
     Dates: end: 20140213
  8. COVERAM [Suspect]
     Indication: HYPERTENSION
     Dosage: LONG STANDING THERAPY TO 10 FEB 2014
     Route: 048
     Dates: end: 20140210
  9. DITROPAN [Suspect]
     Indication: URINARY INCONTINENCE
     Route: 048
     Dates: end: 20140213
  10. EFFERALGAN [Suspect]
     Indication: PAIN
     Dosage: 1 G EFFERVESCENT TABLET ORAL)
     Route: 048
     Dates: end: 20140213
  11. PANTOPRAZOLE [Suspect]
     Indication: PROPHYLAXIS AGAINST GASTROINTESTINAL ULCER
     Dosage: GBQ TWICE PER DAY LONG STANDING THERAPY TO 13 FEB 2014
     Route: 048
     Dates: end: 20140213
  12. SERETIDE [Suspect]
     Indication: CHRONIC OBSTRUCTIVE PULMONARY DISEASE
     Route: 055
  13. SERETIDE [Suspect]
     Indication: CHRONIC OBSTRUCTIVE PULMONARY DISEASE
     Route: 055
     Dates: end: 20140213
  14. SULFARLEM [Suspect]
     Indication: CHRONIC OBSTRUCTIVE PULMONARY DISEASE
     Dosage: LONG STANDING THERAPY TO 13 FEB 2014
     Route: 048
     Dates: end: 20140213
  15. DIFFU K [Suspect]
     Indication: HYPOKALAEMIA
     Route: 048
  16. IXPRIM [Suspect]
     Indication: PAIN
     Dosage: LONG STANDING THERAPY TO 13 FEB 2014
     Route: 048
     Dates: end: 20140213
  17. SPECIAFOLDINE [Concomitant]
     Indication: ANAEMIA
     Dosage: 2 DOSES PER DAY
     Route: 048

REACTIONS (5)
  - Pulmonary fibrosis [Unknown]
  - Hepatitis [Recovering/Resolving]
  - Hypotension [Unknown]
  - Transaminases increased [Recovering/Resolving]
  - Gamma-glutamyltransferase increased [Recovered/Resolved]
